FAERS Safety Report 4452203-8 (Version None)
Quarter: 2004Q3

REPORT INFORMATION
  Report Type: 
  Country: None (occurrence: None)
  Receive Date: 20040917
  Receipt Date: 20040826
  Transmission Date: 20050211
  Serious: Yes (Hospitalization)
  Sender: FDA-Public Use
  Company Number: IT-BRISTOL-MYERS SQUIBB COMPANY-12683462

PATIENT
  Age: 59 Year
  Sex: Female

DRUGS (8)
  1. CETUXIMAB [Suspect]
     Indication: COLORECTAL CANCER METASTATIC
     Route: 042
     Dates: start: 20040819, end: 20040819
  2. IRINOTECAN [Suspect]
     Indication: COLORECTAL CANCER METASTATIC
     Route: 042
     Dates: start: 20040805, end: 20040805
  3. LANSOX [Concomitant]
     Dates: start: 20040805
  4. MELLARIL [Concomitant]
     Dates: start: 19960101
  5. PLASIL [Concomitant]
     Dates: start: 20040805
  6. SANDRENA [Concomitant]
  7. SYMBICORT [Concomitant]
  8. THYROXINE SODIUM [Concomitant]

REACTIONS (2)
  - LOCALISED OEDEMA [None]
  - PHLEBOTHROMBOSIS [None]
